FAERS Safety Report 4517843-6 (Version None)
Quarter: 2004Q4

REPORT INFORMATION
  Report Type: 
  Country: None (occurrence: None)
  Receive Date: 20041203
  Receipt Date: 20041018
  Transmission Date: 20050328
  Serious: Yes (Death, Hospitalization, Other)
  Sender: FDA-Public Use
  Company Number: US-MERCK-0410USA02600

PATIENT
  Age: 75 Year
  Sex: Female

DRUGS (15)
  1. VIOXX [Suspect]
     Route: 048
     Dates: start: 20000801, end: 20020101
  2. DEPAKOTE [Concomitant]
     Route: 048
  3. K-DUR [Concomitant]
     Route: 048
  4. LEVOTHYROXINE SODIUM [Concomitant]
     Route: 048
  5. PREMARIN [Concomitant]
     Route: 065
  6. LANOXIN [Concomitant]
     Route: 048
  7. LANOXIN [Concomitant]
     Route: 048
  8. COUMADIN [Concomitant]
     Route: 048
  9. COZAAR [Concomitant]
     Route: 048
  10. SPIRONOLACTONE [Concomitant]
     Route: 065
  11. LASIX [Concomitant]
     Route: 048
  12. PROZAC [Concomitant]
     Route: 048
  13. SURFAK [Concomitant]
     Route: 065
  14. CLARITIN [Concomitant]
     Route: 065
  15. MAGNESIUM (UNSPECIFIED) [Concomitant]
     Route: 048

REACTIONS (22)
  - ATRIAL FIBRILLATION [None]
  - CARDIAC FAILURE [None]
  - CARDIAC FAILURE CONGESTIVE [None]
  - CEREBROVASCULAR ACCIDENT [None]
  - CONVULSION [None]
  - DEATH [None]
  - DIFFICULTY IN WALKING [None]
  - DYSPNOEA [None]
  - DYSPNOEA PAROXYSMAL NOCTURNAL [None]
  - FATIGUE [None]
  - GENERAL PHYSICAL HEALTH DETERIORATION [None]
  - HYPOMAGNESAEMIA [None]
  - HYPOTHYROIDISM [None]
  - OEDEMA PERIPHERAL [None]
  - ORTHOPNOEA [None]
  - PALPITATIONS [None]
  - PERIPHERAL EMBOLISM [None]
  - SYNCOPE [None]
  - TOE DEFORMITY [None]
  - TRICUSPID VALVE INCOMPETENCE [None]
  - URINARY TRACT INFECTION [None]
  - VENOUS INSUFFICIENCY [None]
